FAERS Safety Report 5923644-4 (Version None)
Quarter: 2008Q4

REPORT INFORMATION
  Report Type: 
  Country: None (occurrence: None)
  Receive Date: 20081015
  Receipt Date: 20080929
  Transmission Date: 20090506
  Serious: Yes (Disabling, Other)
  Sender: FDA-Public Use
  Company Number: MPS1-1000103

PATIENT
  Age: 15 Year
  Sex: Female
  Weight: 35 kg

DRUGS (1)
  1. ALDURAZYME [Suspect]
     Indication: MUCOPOLYSACCHARIDOSIS I
     Dosage: 1 U/KG, QOW, INTRAVENOUS
     Route: 042
     Dates: start: 20031105

REACTIONS (7)
  - BLINDNESS [None]
  - BLOOD ALKALINE PHOSPHATASE INCREASED [None]
  - BLOOD CREATINE PHOSPHOKINASE DECREASED [None]
  - CONDITION AGGRAVATED [None]
  - CORNEAL DEPOSITS [None]
  - HAEMATOCRIT DECREASED [None]
  - HAEMOGLOBIN DECREASED [None]
